FAERS Safety Report 9302754 (Version 6)
Quarter: 2014Q2

REPORT INFORMATION
  Report Type: Spontaneous
  Country: GB (occurrence: GB)
  Receive Date: 20130522
  Receipt Date: 20140408
  Transmission Date: 20141212
  Serious: Yes (Hospitalization, Other)
  Sender: FDA-Public Use
  Company Number: PHFR2013GB002368

PATIENT
  Age: 72 Year
  Sex: Female
  Weight: 86.3 kg

DRUGS (15)
  1. CLOZARIL [Suspect]
     Indication: SCHIZOPHRENIA, PARANOID TYPE
     Dosage: 150 MG, DAILY
     Route: 048
     Dates: start: 20110222
  2. CLOZARIL [Suspect]
     Dosage: 75MG IN NOCTE AND 50MG AT MANE
     Route: 048
     Dates: start: 20130510
  3. CLOZARIL [Suspect]
     Dosage: 50 MG, BID
     Dates: start: 20130524
  4. VALPROATE SODIUM [Concomitant]
     Indication: CONVULSION
     Dosage: 200 MG, BID
     Route: 048
  5. MIRTAZAPINE [Concomitant]
     Indication: DEPRESSION
     Dosage: 400MG DAILY, 30 MG NOCTE
     Route: 048
  6. MIRTAZAPINE [Concomitant]
     Dosage: 30 MG, NOCTE
  7. LANSOPRAZOLE [Concomitant]
     Indication: GASTRITIS
     Dosage: 30 MG,MANE
     Route: 048
  8. ZOPICLONE [Concomitant]
     Indication: SLEEP DISORDER
     Dosage: 7.5 MG, NOCTE
     Route: 048
  9. MACROGOL [Concomitant]
     Indication: CONSTIPATION
     Dosage: UNK UKN, UNK
     Route: 048
  10. CETIRIZINE [Concomitant]
     Dosage: 10 MG, QD
     Dates: start: 20140128
  11. OMEPRAZOLE [Concomitant]
     Dosage: 20 MG, QD
  12. SENNA [Concomitant]
     Dosage: 15 MG, NOCTE
  13. SODIUM VALPROATE [Concomitant]
     Dosage: 200 MG, BID
  14. LAXIDO                             /06401201/ [Concomitant]
     Dosage: 1 DF, BID
  15. LORAZEPAM [Concomitant]
     Dosage: 1 MG, BID

REACTIONS (20)
  - Ovarian cancer [Not Recovered/Not Resolved]
  - Constipation [Unknown]
  - Benign gastric neoplasm [Unknown]
  - C-reactive protein increased [Recovered/Resolved]
  - Angiomyolipoma [Not Recovered/Not Resolved]
  - Antipsychotic drug level increased [Recovered/Resolved]
  - Blood urea increased [Unknown]
  - Blood albumin decreased [Unknown]
  - Blood creatinine increased [Unknown]
  - Protein total decreased [Unknown]
  - Rash generalised [Recovering/Resolving]
  - Blister [Unknown]
  - Pruritus [Unknown]
  - Scratch [Unknown]
  - Blister rupture [Unknown]
  - Pemphigoid [Unknown]
  - Urinary retention [Unknown]
  - Blood alkaline phosphatase increased [Unknown]
  - Haemoglobin decreased [Unknown]
  - Rash [Recovering/Resolving]
